FAERS Safety Report 15575511 (Version 2)
Quarter: 2019Q1

REPORT INFORMATION
  Report Type: Report from Study
  Country: US (occurrence: US)
  Receive Date: 20181101
  Receipt Date: 20190201
  Transmission Date: 20190417
  Serious: Yes (Other)
  Sender: FDA-Public Use
  Company Number: US-ROCHE-2206118

PATIENT
  Age: 70 Year
  Sex: Male
  Weight: 74.2 kg

DRUGS (6)
  1. IBRUTINIB [Suspect]
     Active Substance: IBRUTINIB
     Indication: HIGH-GRADE B-CELL LYMPHOMA
     Dosage: UPTO 6 CYCLES.
     Route: 048
     Dates: start: 20181019, end: 20181019
  2. PREDNISONE. [Suspect]
     Active Substance: PREDNISONE
     Indication: HIGH-GRADE B-CELL LYMPHOMA
     Dosage: ON DAYS 1-7 EVERY 21 DAYS, UPTO 6 CYCLES
     Route: 048
     Dates: start: 20181019, end: 20181023
  3. OBINUTUZUMAB. [Suspect]
     Active Substance: OBINUTUZUMAB
     Route: 042
     Dates: start: 20181020
  4. VENETOCLAX. [Suspect]
     Active Substance: VENETOCLAX
     Indication: HIGH-GRADE B-CELL LYMPHOMA
     Route: 048
     Dates: start: 20181020, end: 20181023
  5. LENALIDOMIDE [Suspect]
     Active Substance: LENALIDOMIDE
     Indication: HIGH-GRADE B-CELL LYMPHOMA
     Dosage: ON DAYS 1-15, EVERY 21 DAYS, UPTO 6 CYCLES.
     Route: 048
     Dates: start: 20181019, end: 20181023
  6. OBINUTUZUMAB. [Suspect]
     Active Substance: OBINUTUZUMAB
     Indication: HIGH-GRADE B-CELL LYMPHOMA
     Dosage: UPTO 6 CYCLES.
     Route: 042
     Dates: start: 20181019

REACTIONS (1)
  - Atrial fibrillation [Recovered/Resolved]

NARRATIVE: CASE EVENT DATE: 20181021
